FAERS Safety Report 25520195 (Version 3)
Quarter: 2025Q3

REPORT INFORMATION
  Report Type: Spontaneous
  Country: CA (occurrence: CA)
  Receive Date: 20250704
  Receipt Date: 20250825
  Transmission Date: 20251020
  Serious: Yes (Life-Threatening, Hospitalization, Disabling)
  Sender: BRISTOL-MYERS SQUIBB COMPANY
  Company Number: CA-BRISTOL-MYERS SQUIBB COMPANY-2025-093793

PATIENT
  Age: 40 Year
  Sex: Female
  Weight: 96 kg

DRUGS (125)
  1. ORENCIA [Suspect]
     Active Substance: ABATACEPT
     Indication: Rheumatoid arthritis
  2. ADALIMUMAB [Concomitant]
     Active Substance: ADALIMUMAB
     Indication: Rheumatoid arthritis
     Route: 058
  3. ADALIMUMAB [Concomitant]
     Active Substance: ADALIMUMAB
     Route: 058
  4. AIMOVIG [Concomitant]
     Active Substance: ERENUMAB-AOOE
     Indication: Migraine
  5. ALENDRONIC ACID [Concomitant]
     Active Substance: ALENDRONIC ACID
     Indication: Rheumatoid arthritis
     Route: 048
  6. ALENDRONIC ACID [Concomitant]
     Active Substance: ALENDRONIC ACID
  7. CANDESARTAN [Concomitant]
     Active Substance: CANDESARTAN
     Indication: Migraine
  8. CORTISONE ACETATE [Concomitant]
     Active Substance: CORTISONE ACETATE
     Indication: Rheumatoid arthritis
  9. CORTISONE ACETATE [Concomitant]
     Active Substance: CORTISONE ACETATE
     Route: 048
  10. CORTISONE ACETATE [Concomitant]
     Active Substance: CORTISONE ACETATE
     Route: 048
  11. CORTISONE ACETATE [Concomitant]
     Active Substance: CORTISONE ACETATE
     Route: 048
  12. DESOXIMETASONE [Concomitant]
     Active Substance: DESOXIMETASONE
     Indication: Rheumatoid arthritis
     Route: 058
  13. DESOXIMETASONE [Concomitant]
     Active Substance: DESOXIMETASONE
     Route: 058
  14. DESOXIMETASONE [Concomitant]
     Active Substance: DESOXIMETASONE
     Route: 058
  15. DESOXIMETASONE [Concomitant]
     Active Substance: DESOXIMETASONE
  16. DICLOFENAC [Concomitant]
     Active Substance: DICLOFENAC
     Indication: Product used for unknown indication
     Route: 058
  17. DICLOFENAC [Concomitant]
     Active Substance: DICLOFENAC
  18. DOMPERIDONE MALEATE [Concomitant]
     Active Substance: DOMPERIDONE MALEATE
     Indication: Product used for unknown indication
  19. ENBREL [Concomitant]
     Active Substance: ETANERCEPT
     Indication: Rheumatoid arthritis
     Route: 058
  20. ENBREL [Concomitant]
     Active Substance: ETANERCEPT
  21. ENBREL [Concomitant]
     Active Substance: ETANERCEPT
     Route: 058
  22. ENBREL [Concomitant]
     Active Substance: ETANERCEPT
  23. ENBREL [Concomitant]
     Active Substance: ETANERCEPT
     Route: 058
  24. FLUMETHASONE PIVALATE [Concomitant]
     Active Substance: FLUMETHASONE PIVALATE
     Indication: Product used for unknown indication
  25. FLUMETHASONE PIVALATE [Concomitant]
     Active Substance: FLUMETHASONE PIVALATE
  26. FLUMETHASONE\SALICYLIC ACID [Concomitant]
     Active Substance: FLUMETHASONE\SALICYLIC ACID
     Indication: Product used for unknown indication
  27. FOLIC ACID [Concomitant]
     Active Substance: FOLIC ACID
     Indication: Rheumatoid arthritis
     Route: 048
  28. FOLIC ACID [Concomitant]
     Active Substance: FOLIC ACID
     Route: 058
  29. FOLIC ACID [Concomitant]
     Active Substance: FOLIC ACID
     Route: 048
  30. FOLIC ACID [Concomitant]
     Active Substance: FOLIC ACID
  31. FOLIC ACID [Concomitant]
     Active Substance: FOLIC ACID
     Route: 048
  32. FOLIC ACID [Concomitant]
     Active Substance: FOLIC ACID
     Route: 058
  33. FOLIC ACID [Concomitant]
     Active Substance: FOLIC ACID
  34. FOLIC ACID [Concomitant]
     Active Substance: FOLIC ACID
  35. FOLIC ACID [Concomitant]
     Active Substance: FOLIC ACID
     Route: 048
  36. FOLIC ACID [Concomitant]
     Active Substance: FOLIC ACID
     Route: 048
  37. FOSAMAX [Concomitant]
     Active Substance: ALENDRONATE SODIUM
     Indication: Rheumatoid arthritis
     Route: 058
  38. FOSAMAX [Concomitant]
     Active Substance: ALENDRONATE SODIUM
     Route: 048
  39. FOSAMAX [Concomitant]
     Active Substance: ALENDRONATE SODIUM
     Route: 016
  40. GOLD SODIUM THIOMALATE [Concomitant]
     Active Substance: GOLD SODIUM THIOMALATE
     Indication: Product used for unknown indication
     Route: 030
  41. GOLD SODIUM THIOMALATE [Concomitant]
     Active Substance: GOLD SODIUM THIOMALATE
     Route: 030
  42. HUMIRA [Concomitant]
     Active Substance: ADALIMUMAB
     Indication: Rheumatoid arthritis
     Route: 058
  43. HUMIRA [Concomitant]
     Active Substance: ADALIMUMAB
     Route: 058
  44. HUMIRA [Concomitant]
     Active Substance: ADALIMUMAB
  45. HYDROXYCHLOROQUINE [Concomitant]
     Active Substance: HYDROXYCHLOROQUINE
     Indication: Rheumatoid arthritis
     Route: 048
  46. HYDROXYCHLOROQUINE [Concomitant]
     Active Substance: HYDROXYCHLOROQUINE
     Route: 048
  47. HYDROXYCHLOROQUINE [Concomitant]
     Active Substance: HYDROXYCHLOROQUINE
     Route: 058
  48. ISOPROPYL ALCOHOL [Concomitant]
     Active Substance: ISOPROPYL ALCOHOL
     Indication: Product used for unknown indication
     Route: 048
  49. ISOPROPYL ALCOHOL [Concomitant]
     Active Substance: ISOPROPYL ALCOHOL
     Route: 048
  50. ISOPROPYL ALCOHOL [Concomitant]
     Active Substance: ISOPROPYL ALCOHOL
     Route: 048
  51. LEFLUNOMIDE [Concomitant]
     Active Substance: LEFLUNOMIDE
     Indication: Rheumatoid arthritis
  52. LEFLUNOMIDE [Concomitant]
     Active Substance: LEFLUNOMIDE
  53. LEFLUNOMIDE [Concomitant]
     Active Substance: LEFLUNOMIDE
  54. MAGNESIUM CITRATE [Concomitant]
     Active Substance: MAGNESIUM CITRATE
     Indication: Product used for unknown indication
  55. METHOTREXATE SODIUM [Concomitant]
     Active Substance: METHOTREXATE SODIUM
     Indication: Rheumatoid arthritis
     Route: 058
  56. METHOTREXATE SODIUM [Concomitant]
     Active Substance: METHOTREXATE SODIUM
  57. METHOTREXATE SODIUM [Concomitant]
     Active Substance: METHOTREXATE SODIUM
     Route: 058
  58. METHOTREXATE SODIUM [Concomitant]
     Active Substance: METHOTREXATE SODIUM
     Route: 058
  59. METHYLPREDNISOLONE ACETATE [Concomitant]
     Active Substance: METHYLPREDNISOLONE ACETATE
     Indication: Product used for unknown indication
  60. METHYLPREDNISOLONE SODIUM SUCCINATE [Concomitant]
     Active Substance: METHYLPREDNISOLONE SODIUM SUCCINATE
     Indication: Product used for unknown indication
  61. MINOCYCLINE HYDROCHLORIDE [Concomitant]
     Active Substance: MINOCYCLINE HYDROCHLORIDE
     Indication: Rheumatoid arthritis
  62. MYOCHRYSINE [Concomitant]
     Active Substance: GOLD SODIUM THIOMALATE
     Indication: Rheumatoid arthritis
     Route: 030
  63. NAPROXEN [Concomitant]
     Active Substance: NAPROXEN
     Indication: Product used for unknown indication
  64. NAPROXEN SODIUM [Concomitant]
     Active Substance: NAPROXEN SODIUM
     Indication: Rheumatoid arthritis
  65. NICOTINAMIDE [Concomitant]
     Active Substance: NIACINAMIDE
     Indication: Product used for unknown indication
  66. NUCALA [Concomitant]
     Active Substance: MEPOLIZUMAB
     Indication: Product used for unknown indication
  67. OXYCODONE HYDROCHLORIDE [Concomitant]
     Active Substance: OXYCODONE HYDROCHLORIDE
     Indication: Product used for unknown indication
  68. PERIOGARD [Concomitant]
     Active Substance: CHLORHEXIDINE GLUCONATE
     Indication: Product used for unknown indication
     Route: 002
  69. PREDNISONE [Concomitant]
     Active Substance: PREDNISONE
     Indication: Rheumatoid arthritis
     Route: 048
  70. RAMIPRIL [Concomitant]
     Active Substance: RAMIPRIL
     Indication: Rheumatoid arthritis
     Route: 040
  71. CETIRIZINE HYDROCHLORIDE\PSEUDOEPHEDRINE HYDROCHLORIDE [Concomitant]
     Active Substance: CETIRIZINE HYDROCHLORIDE\PSEUDOEPHEDRINE HYDROCHLORIDE
     Indication: Rheumatoid arthritis
     Route: 040
  72. CETIRIZINE HYDROCHLORIDE\PSEUDOEPHEDRINE HYDROCHLORIDE [Concomitant]
     Active Substance: CETIRIZINE HYDROCHLORIDE\PSEUDOEPHEDRINE HYDROCHLORIDE
     Route: 040
  73. CETIRIZINE HYDROCHLORIDE\PSEUDOEPHEDRINE HYDROCHLORIDE [Concomitant]
     Active Substance: CETIRIZINE HYDROCHLORIDE\PSEUDOEPHEDRINE HYDROCHLORIDE
     Route: 040
  74. REMICADE [Concomitant]
     Active Substance: INFLIXIMAB
     Indication: Rheumatoid arthritis
     Route: 058
  75. REMICADE [Concomitant]
     Active Substance: INFLIXIMAB
     Route: 058
  76. REMICADE [Concomitant]
     Active Substance: INFLIXIMAB
     Route: 040
  77. REMICADE [Concomitant]
     Active Substance: INFLIXIMAB
     Route: 040
  78. RITUXIMAB [Concomitant]
     Active Substance: RITUXIMAB
     Indication: Rheumatoid arthritis
     Route: 043
  79. RITUXIMAB [Concomitant]
     Active Substance: RITUXIMAB
  80. RITUXIMAB [Concomitant]
     Active Substance: RITUXIMAB
     Route: 058
  81. RITUXIMAB [Concomitant]
     Active Substance: RITUXIMAB
  82. RITUXIMAB [Concomitant]
     Active Substance: RITUXIMAB
  83. RITUXIMAB [Concomitant]
     Active Substance: RITUXIMAB
     Route: 040
  84. SIMPONI [Concomitant]
     Active Substance: GOLIMUMAB
     Indication: Rheumatoid arthritis
     Route: 058
  85. SIMPONI [Concomitant]
     Active Substance: GOLIMUMAB
     Route: 058
  86. SULFASALAZINE [Concomitant]
     Active Substance: SULFASALAZINE
     Indication: Rheumatoid arthritis
  87. SULFASALAZINE [Concomitant]
     Active Substance: SULFASALAZINE
     Route: 058
  88. SULFASALAZINE [Concomitant]
     Active Substance: SULFASALAZINE
  89. SULFASALAZINE [Concomitant]
     Active Substance: SULFASALAZINE
  90. SULFASALAZINE [Concomitant]
     Active Substance: SULFASALAZINE
  91. SULFASALAZINE [Concomitant]
     Active Substance: SULFASALAZINE
     Route: 048
  92. SULFASALAZINE [Concomitant]
     Active Substance: SULFASALAZINE
  93. VITAMIN C [Concomitant]
     Active Substance: ASCORBIC ACID
     Indication: Product used for unknown indication
  94. XELJANZ [Concomitant]
     Active Substance: TOFACITINIB CITRATE
     Indication: Rheumatoid arthritis
     Route: 048
  95. XELJANZ [Concomitant]
     Active Substance: TOFACITINIB CITRATE
     Route: 048
  96. TOPIRAMATE [Concomitant]
     Active Substance: TOPIRAMATE
     Indication: Product used for unknown indication
  97. TOPIRAMATE [Concomitant]
     Active Substance: TOPIRAMATE
  98. ERENUMAB-AOOE [Concomitant]
     Active Substance: ERENUMAB-AOOE
     Indication: Migraine
  99. ACTEMRA [Concomitant]
     Active Substance: TOCILIZUMAB
     Indication: Rheumatoid arthritis
     Route: 058
  100. ACTEMRA [Concomitant]
     Active Substance: TOCILIZUMAB
     Route: 058
  101. ACTEMRA [Concomitant]
     Active Substance: TOCILIZUMAB
     Route: 040
  102. ACTEMRA [Concomitant]
     Active Substance: TOCILIZUMAB
     Route: 040
  103. ACTEMRA [Concomitant]
     Active Substance: TOCILIZUMAB
     Route: 058
  104. ACTEMRA [Concomitant]
     Active Substance: TOCILIZUMAB
     Route: 040
  105. ACTEMRA [Concomitant]
     Active Substance: TOCILIZUMAB
  106. ACTEMRA [Concomitant]
     Active Substance: TOCILIZUMAB
     Route: 040
  107. ACTEMRA [Concomitant]
     Active Substance: TOCILIZUMAB
  108. ARAVA [Concomitant]
     Active Substance: LEFLUNOMIDE
     Indication: Rheumatoid arthritis
     Route: 048
  109. ATOMOXETINE HYDROCHLORIDE [Concomitant]
     Active Substance: ATOMOXETINE HYDROCHLORIDE
     Indication: Migraine
  110. ATOMOXETINE HYDROCHLORIDE [Concomitant]
     Active Substance: ATOMOXETINE HYDROCHLORIDE
  111. BUTRANS [Concomitant]
     Active Substance: BUPRENORPHINE
     Indication: Product used for unknown indication
  112. CETIRIZINE HYDROCHLORIDE [Concomitant]
     Active Substance: CETIRIZINE HYDROCHLORIDE
     Indication: Rheumatoid arthritis
     Route: 048
  113. CETIRIZINE HYDROCHLORIDE [Concomitant]
     Active Substance: CETIRIZINE HYDROCHLORIDE
     Route: 048
  114. CETIRIZINE HYDROCHLORIDE [Concomitant]
     Active Substance: CETIRIZINE HYDROCHLORIDE
  115. CIMZIA [Concomitant]
     Active Substance: CERTOLIZUMAB PEGOL
     Indication: Psoriasis
     Route: 058
  116. CIMZIA [Concomitant]
     Active Substance: CERTOLIZUMAB PEGOL
     Indication: Rheumatoid arthritis
     Route: 058
  117. CIMZIA [Concomitant]
     Active Substance: CERTOLIZUMAB PEGOL
     Route: 058
  118. COSENTYX [Concomitant]
     Active Substance: SECUKINUMAB
     Indication: Psoriatic arthropathy
  119. METHOTREXATE [Concomitant]
     Active Substance: METHOTREXATE
     Indication: Rheumatoid arthritis
     Route: 058
  120. METHOTREXATE [Concomitant]
     Active Substance: METHOTREXATE
     Route: 058
  121. METHOTREXATE [Concomitant]
     Active Substance: METHOTREXATE
     Route: 058
  122. METHOTREXATE [Concomitant]
     Active Substance: METHOTREXATE
     Route: 048
  123. METHOTREXATE [Concomitant]
     Active Substance: METHOTREXATE
     Route: 058
  124. METHOTREXATE [Concomitant]
     Active Substance: METHOTREXATE
  125. ERELZI [Concomitant]
     Active Substance: ETANERCEPT-SZZS
     Indication: Product used for unknown indication

REACTIONS (55)
  - Adverse event [Unknown]
  - Hospitalisation [Unknown]
  - Abdominal discomfort [Unknown]
  - Abdominal distension [Unknown]
  - Abdominal pain upper [Unknown]
  - Anti-cyclic citrullinated peptide antibody positive [Unknown]
  - Arthralgia [Unknown]
  - Back injury [Unknown]
  - C-reactive protein abnormal [Unknown]
  - Condition aggravated [Unknown]
  - Confusional state [Unknown]
  - Drug hypersensitivity [Unknown]
  - Drug ineffective [Unknown]
  - Drug intolerance [Unknown]
  - Dry mouth [Unknown]
  - Dyspepsia [Unknown]
  - Dyspnoea [Unknown]
  - Facet joint syndrome [Unknown]
  - Fall [Unknown]
  - Fatigue [Unknown]
  - Fibromyalgia [Unknown]
  - Finger deformity [Unknown]
  - Folliculitis [Unknown]
  - Gait inability [Unknown]
  - Gastrooesophageal reflux disease [Unknown]
  - Glossodynia [Unknown]
  - Hypercholesterolaemia [Unknown]
  - Ill-defined disorder [Unknown]
  - Impaired healing [Unknown]
  - Injury [Unknown]
  - Insomnia [Unknown]
  - Joint range of motion decreased [Unknown]
  - Lip dry [Unknown]
  - Migraine [Unknown]
  - Muscle injury [Unknown]
  - Muscle spasms [Unknown]
  - Nail disorder [Unknown]
  - Nausea [Unknown]
  - Neck pain [Unknown]
  - Night sweats [Unknown]
  - Onychomadesis [Unknown]
  - Osteoarthritis [Unknown]
  - Pain [Unknown]
  - Product label confusion [Unknown]
  - Product quality issue [Unknown]
  - Rash [Unknown]
  - Sleep disorder [Unknown]
  - Taste disorder [Unknown]
  - Therapeutic product effect decreased [Unknown]
  - Treatment failure [Unknown]
  - Weight increased [Unknown]
  - Wheezing [Unknown]
  - Wound [Unknown]
  - Off label use [Unknown]
  - Irritable bowel syndrome [Unknown]
